FAERS Safety Report 6968718-4 (Version None)
Quarter: 2010Q3

REPORT INFORMATION
  Report Type: 
  Country: None (occurrence: None)
  Receive Date: 20100907
  Receipt Date: 20100826
  Transmission Date: 20110219
  Serious: Yes (Death)
  Sender: FDA-Public Use
  Company Number: JP-MERCK-1008USA04183

PATIENT
  Age: 65 Year
  Sex: Female

DRUGS (2)
  1. PEPCID [Suspect]
     Route: 048
     Dates: start: 20090701, end: 20090801
  2. CEFZON [Suspect]
     Route: 048
     Dates: start: 20090701, end: 20090701

REACTIONS (2)
  - MULTI-ORGAN FAILURE [None]
  - TOXIC EPIDERMAL NECROLYSIS [None]
